FAERS Safety Report 7769011-2 (Version None)
Quarter: 2011Q3

REPORT INFORMATION
  Report Type: 
  Country: None (occurrence: None)
  Receive Date: 20110922
  Receipt Date: 20101109
  Transmission Date: 20111222
  Serious: No
  Sender: FDA-Public Use
  Company Number: US-ASTRAZENECA-2010SE53308

PATIENT
  Age: 25 Year
  Sex: Female
  Weight: 52.6 kg

DRUGS (2)
  1. SEROQUEL XR [Suspect]
     Indication: BIPOLAR II DISORDER
     Route: 048
     Dates: start: 20100801, end: 20101101
  2. SEROQUEL XR [Suspect]
     Route: 048
     Dates: start: 20101101, end: 20101101

REACTIONS (3)
  - DIARRHOEA [None]
  - DRUG DOSE OMISSION [None]
  - HYPERHIDROSIS [None]
